FAERS Safety Report 8224285-9 (Version None)
Quarter: 2012Q1

REPORT INFORMATION
  Report Type: 
  Country: None (occurrence: None)
  Receive Date: 20120321
  Receipt Date: 20120313
  Transmission Date: 20120608
  Serious: Yes (Hospitalization)
  Sender: FDA-Public Use
  Company Number: US-ASTELLAS-2012US002826

PATIENT
  Sex: Male

DRUGS (2)
  1. ERLOTINIB HYDROCHLORIDE [Suspect]
     Dosage: UNK
     Route: 048
  2. ERLOTINIB HYDROCHLORIDE [Suspect]
     Indication: BONE NEOPLASM MALIGNANT
     Dosage: 150 MG, UID/QD
     Route: 048
     Dates: start: 20111123

REACTIONS (4)
  - OFF LABEL USE [None]
  - RASH [None]
  - EYE IRRITATION [None]
  - ANAEMIA [None]
